FAERS Safety Report 19619516 (Version 1)
Quarter: 2021Q3

REPORT INFORMATION
  Report Type: Spontaneous
  Country: US (occurrence: US)
  Receive Date: 20210727
  Receipt Date: 20210727
  Transmission Date: 20211014
  Serious: Yes (Hospitalization)
  Sender: FDA-Public Use
  Company Number: None

PATIENT
  Sex: Male

DRUGS (1)
  1. CYCLOSPORINE MOD 50MG CAP [Suspect]
     Active Substance: CYCLOSPORINE
     Indication: ACUTE KIDNEY INJURY
     Route: 048

REACTIONS (1)
  - Off label use [None]
